FAERS Safety Report 11935032 (Version 3)
Quarter: 2016Q2

REPORT INFORMATION
  Report Type: Report from Study
  Country: US (occurrence: US)
  Receive Date: 20160121
  Receipt Date: 20160517
  Transmission Date: 20160815
  Serious: Yes (Death, Hospitalization, Other)
  Sender: FDA-Public Use
  Company Number: US-BAYER-2014-147345

PATIENT
  Age: 56 Year
  Sex: Male
  Weight: 83.9 kg

DRUGS (6)
  1. ADEMPAS [Suspect]
     Active Substance: RIOCIGUAT
     Indication: PULMONARY HYPERTENSION
     Dosage: 2.5 MG, TID
     Route: 048
  2. ADEMPAS [Suspect]
     Active Substance: RIOCIGUAT
     Indication: PULMONARY HYPERTENSION
     Dosage: 2.5 MG, TID
     Route: 048
  3. ADEMPAS [Suspect]
     Active Substance: RIOCIGUAT
     Indication: PULMONARY HYPERTENSION
     Dosage: UNK
     Dates: start: 20140904
  4. ADEMPAS [Suspect]
     Active Substance: RIOCIGUAT
     Indication: PORTOPULMONARY HYPERTENSION
     Dosage: 1.5 MG, TID
     Route: 048
  5. LETAIRIS [Concomitant]
     Active Substance: AMBRISENTAN
     Dosage: UNK
  6. ADEMPAS [Suspect]
     Active Substance: RIOCIGUAT
     Indication: PULMONARY HYPERTENSION
     Dosage: 2.5 MG, TID
     Route: 048

REACTIONS (11)
  - Drug ineffective [Unknown]
  - Neuropathy peripheral [None]
  - Right ventricular failure [None]
  - Death [Fatal]
  - Atrial fibrillation [Recovered/Resolved]
  - Bone disorder [None]
  - Epistaxis [Unknown]
  - Pulmonary arterial hypertension [Not Recovered/Not Resolved]
  - Small intestinal obstruction [Not Recovered/Not Resolved]
  - Neck pain [None]
  - Oedema peripheral [Unknown]

NARRATIVE: CASE EVENT DATE: 201409
